FAERS Safety Report 5497256-3 (Version None)
Quarter: 2007Q4

REPORT INFORMATION
  Report Type: 
  Country: None (occurrence: None)
  Receive Date: 20071025
  Receipt Date: 20061020
  Transmission Date: 20080405
  Serious: No
  Sender: FDA-Public Use
  Company Number: A0620850A

PATIENT
  Age: 42 Year
  Sex: Female

DRUGS (6)
  1. ADVAIR DISKUS 100/50 [Suspect]
     Indication: ASTHMA
     Dosage: 1PUFF TWICE PER DAY
     Route: 055
     Dates: start: 20010101
  2. BUPROPION HCL [Suspect]
     Indication: DRUG USE FOR UNKNOWN INDICATION
     Route: 048
     Dates: start: 20060701
  3. SINGULAIR [Concomitant]
  4. ALLEGRA [Concomitant]
  5. PATANOL [Concomitant]
  6. CORTIZONE CREAM [Concomitant]

REACTIONS (8)
  - DIZZINESS [None]
  - DRUG INTERACTION [None]
  - EAR PRURITUS [None]
  - ECZEMA [None]
  - LIP SWELLING [None]
  - PARAESTHESIA [None]
  - VERTIGO [None]
  - VISUAL DISTURBANCE [None]
